FAERS Safety Report 4641986-X (Version None)
Quarter: 2005Q2

REPORT INFORMATION
  Report Type: 
  Country: None (occurrence: None)
  Receive Date: 20050421
  Receipt Date: 20050408
  Transmission Date: 20051028
  Serious: Yes (Other)
  Sender: FDA-Public Use
  Company Number: 2005016209

PATIENT
  Age: 66 Year
  Sex: Female
  Weight: 58.9676 kg

DRUGS (8)
  1. BEXTRA [Suspect]
     Indication: ARTHRITIS
     Dosage: 20 MG (20 MG, 1 IN 1 D)
     Dates: start: 20041001, end: 20041119
  2. FLECAINIDE ACETATE [Concomitant]
  3. ESTRADIOL [Concomitant]
  4. MEDROXYPROGESTERONE [Concomitant]
  5. ALPRAZOLAM [Concomitant]
  6. VITAMINS (VITAMINS) [Concomitant]
  7. CHONDROITIN/GLUCOSAMINE (CHRONDROITIN, GLUCOSAMINE) [Concomitant]
  8. IBUPROFEN [Concomitant]

REACTIONS (7)
  - DRUG INEFFECTIVE [None]
  - FEELING ABNORMAL [None]
  - FEELING HOT [None]
  - HYPERSENSITIVITY [None]
  - PRURITUS [None]
  - RASH ERYTHEMATOUS [None]
  - RASH GENERALISED [None]
